FAERS Safety Report 4544812-2 (Version None)
Quarter: 2004Q4

REPORT INFORMATION
  Report Type: 
  Country: None (occurrence: None)
  Receive Date: 20041230
  Receipt Date: 20041215
  Transmission Date: 20050328
  Serious: Yes (Other)
  Sender: FDA-Public Use
  Company Number: S04-FRA-08249-01

PATIENT
  Age: 20 Year
  Sex: Female

DRUGS (2)
  1. CITALOPRAM HYDROBROMIDE [Suspect]
     Indication: OVERDOSE
     Dosage: 280 MG ONCE PO
     Route: 048
     Dates: start: 20041215, end: 20041215
  2. LYSANXIA               (PRAZEPAM) [Suspect]
     Indication: OVERDOSE
     Dates: start: 20041215, end: 20041215

REACTIONS (4)
  - ALCOHOL USE [None]
  - EXCITABILITY [None]
  - MULTIPLE DRUG OVERDOSE [None]
  - SUICIDE ATTEMPT [None]
